FAERS Safety Report 7576778-5 (Version None)
Quarter: 2011Q2

REPORT INFORMATION
  Report Type: 
  Country: None (occurrence: None)
  Receive Date: 20110628
  Receipt Date: 20110620
  Transmission Date: 20111010
  Serious: Yes (Death, Hospitalization, Other)
  Sender: FDA-Public Use
  Company Number: BR-BAYER-2011-053232

PATIENT
  Age: 71 Year
  Sex: Male
  Weight: 63 kg

DRUGS (3)
  1. CATAFLAM D [Concomitant]
     Indication: ARTHRALGIA
     Dosage: 1 DF, PRN
     Route: 061
     Dates: start: 20060901
  2. SORAFENIB (RAF KINASE INHIBITOR) [Suspect]
     Indication: RENAL CANCER
     Dosage: 200 MG, BID
     Route: 048
     Dates: start: 20060901, end: 20110320
  3. DICLOFENAC SODIUM [Concomitant]
     Indication: ARTHRALGIA
     Dosage: 1 DF, PRN
     Route: 061
     Dates: start: 20060901

REACTIONS (8)
  - KIDNEY INFECTION [None]
  - INFECTION [None]
  - BRAIN NEOPLASM MALIGNANT [None]
  - MYOCARDIAL INFARCTION [None]
  - LUNG INFECTION [None]
  - CEREBROVASCULAR ACCIDENT [None]
  - PARALYSIS [None]
  - LUNG NEOPLASM MALIGNANT [None]
